FAERS Safety Report 25981782 (Version 1)
Quarter: 2025Q4

REPORT INFORMATION
  Report Type: Spontaneous
  Country: US (occurrence: US)
  Receive Date: 20251031
  Receipt Date: 20251031
  Transmission Date: 20260118
  Serious: No
  Sender: ROCHE
  Company Number: US-ROCHE-10000416570

PATIENT
  Sex: Female

DRUGS (7)
  1. XOLAIR PFS [Suspect]
     Active Substance: OMALIZUMAB
     Indication: Angioedema
     Dosage: 300MG (2 PEN)
     Route: 058
  2. Allegra Alle tab 180 mg [Concomitant]
     Route: 048
  3. Icatibant AC SOS 30 mg/ 3 ml [Concomitant]
     Dosage: 30 MG/ 3 ML
  4. Latanoprost SOL 0.005 % [Concomitant]
  5. Lovastatin 10 mg [Concomitant]
     Route: 048
  6. Pantoprazole TBE 40 mg [Concomitant]
  7. Zyrtec Aller Tab 10 mg [Concomitant]
     Route: 048

REACTIONS (3)
  - Abdominal pain [Unknown]
  - Alopecia [Unknown]
  - Muscle spasms [Unknown]
